FAERS Safety Report 7983117-4 (Version None)
Quarter: 2011Q4

REPORT INFORMATION
  Report Type: 
  Country: None (occurrence: None)
  Receive Date: 20111215
  Receipt Date: 20111206
  Transmission Date: 20120403
  Serious: Yes (Hospitalization)
  Sender: FDA-Public Use
  Company Number: DE-BRISTOL-MYERS SQUIBB COMPANY-16276529

PATIENT
  Age: 59 Year
  Sex: Male

DRUGS (5)
  1. PLACEBO [Suspect]
     Indication: TYPE 2 DIABETES MELLITUS
     Route: 048
     Dates: start: 20110607
  2. ASPIRIN [Concomitant]
     Dosage: DF= { 100MG (30MAY2011,19SEP2011+05DEC2011)
     Dates: start: 20110530
  3. GLIMEPIRIDE [Suspect]
     Indication: TYPE 2 DIABETES MELLITUS
     Dosage: BEFORE RANDOMIZATION -28OCT2011 APPROX 12AM(DISCONTINUED)
     Dates: end: 20111027
  4. METFORMIN HCL [Suspect]
     Indication: TYPE 2 DIABETES MELLITUS
     Dosage: BEFORE RANDOMIZATION - 27OCT2011 (2000MG) 28OCT2011-CONTINUING (1000MG)(REDUCED)
  5. BLINDED: SAXAGLIPTIN [Suspect]
     Indication: TYPE 2 DIABETES MELLITUS
     Route: 048
     Dates: start: 20110607

REACTIONS (1)
  - HYPOGLYCAEMIC SEIZURE [None]
